FAERS Safety Report 15192849 (Version 3)
Quarter: 2019Q2

REPORT INFORMATION
  Report Type: Spontaneous
  Country: US (occurrence: US)
  Receive Date: 20180725
  Receipt Date: 20190521
  Transmission Date: 20190711
  Serious: Yes (Other)
  Sender: FDA-Public Use
  Company Number: US-BRISTOL-MYERS SQUIBB COMPANY-BMS-2018-068323

PATIENT
  Sex: Female
  Weight: 67.12 kg

DRUGS (1)
  1. ORENCIA [Suspect]
     Active Substance: ABATACEPT
     Indication: RHEUMATOID ARTHRITIS
     Dosage: 125 MILLIGRAM, QWK
     Route: 058
     Dates: start: 201801

REACTIONS (7)
  - Wound [Unknown]
  - Kidney infection [Unknown]
  - Inappropriate schedule of product administration [Unknown]
  - Cough [Unknown]
  - Accident [Unknown]
  - Upper limb fracture [Unknown]
  - Condition aggravated [Unknown]
